FAERS Safety Report 8805024 (Version 2)
Quarter: 2012Q4

REPORT INFORMATION
  Report Type: Spontaneous
  Country: JP (occurrence: None)
  Receive Date: 20120917
  Receipt Date: 20121004
  Transmission Date: 20130627
  Serious: Yes (Hospitalization)
  Sender: FDA-Public Use
  Company Number: DSA_59384_2012

PATIENT
  Age: 74 Year
  Sex: Female

DRUGS (2)
  1. RENIVACE [Suspect]
     Indication: CARDIAC FAILURE
     Dosage: DF Oral
     Route: 048
     Dates: start: 200403, end: 201208
  2. RENIVACE [Suspect]
     Indication: HYPERTENSION
     Dosage: DF Oral
     Route: 048
     Dates: start: 200403, end: 201208

REACTIONS (1)
  - Angioedema [None]
